FAERS Safety Report 19305455 (Version 1)
Quarter: 2021Q2

REPORT INFORMATION
  Report Type: Spontaneous
  Country: CO (occurrence: CO)
  Receive Date: 20210525
  Receipt Date: 20210525
  Transmission Date: 20210717
  Serious: Yes (Death, Hospitalization)
  Sender: FDA-Public Use
  Company Number: CO-PFIZER INC-2021536263

PATIENT
  Age: 75 Year
  Sex: Female

DRUGS (1)
  1. XELJANZ [Suspect]
     Active Substance: TOFACITINIB CITRATE
     Indication: RHEUMATOID ARTHRITIS
     Dosage: 5 MG, 2X/DAY
     Route: 048
     Dates: start: 2017

REACTIONS (11)
  - Dyspnoea [Unknown]
  - Joint swelling [Unknown]
  - Hypothermia [Fatal]
  - Abdominal pain upper [Unknown]
  - Blood pressure decreased [Unknown]
  - Blood glucose decreased [Unknown]
  - Bone disorder [Unknown]
  - Cardiac disorder [Unknown]
  - Bone pain [Unknown]
  - COVID-19 [Unknown]
  - Musculoskeletal chest pain [Unknown]

NARRATIVE: CASE EVENT DATE: 2019
